FAERS Safety Report 5509165-1 (Version None)
Quarter: 2007Q4

REPORT INFORMATION
  Report Type: 
  Country: None (occurrence: None)
  Receive Date: 20071031
  Receipt Date: 20070701
  Transmission Date: 20080405
  Serious: No
  Sender: FDA-Public Use
  Company Number: 2007PV033080

PATIENT
  Sex: Female

DRUGS (2)
  1. SYMLIN [Suspect]
     Indication: DRUG USE FOR UNKNOWN INDICATION
     Dosage: 30 MCG; SC; 15 MCG; SC
     Route: 058
     Dates: start: 20070625, end: 20070629
  2. SYMLIN [Suspect]
     Indication: DRUG USE FOR UNKNOWN INDICATION
     Dosage: 30 MCG; SC; 15 MCG; SC
     Route: 058
     Dates: start: 20070629

REACTIONS (1)
  - NAUSEA [None]
